FAERS Safety Report 4549586-7 (Version None)
Quarter: 2005Q1

REPORT INFORMATION
  Report Type: 
  Country: None (occurrence: None)
  Receive Date: 20050106
  Receipt Date: 20041228
  Transmission Date: 20050727
  Serious: Yes (Hospitalization)
  Sender: FDA-Public Use
  Company Number: 2004120828

PATIENT
  Age: 7 Year
  Sex: Female

DRUGS (6)
  1. EPIRUBICIN [Suspect]
     Indication: RHABDOMYOSARCOMA
     Dosage: 150 MG/M2
  2. ETOPOSIDE [Suspect]
     Indication: RHABDOMYOSARCOMA
     Dosage: 150 MG/M2
  3. VINCRISTINE SULFATE [Suspect]
     Indication: RHABDOMYOSARCOMA
     Dosage: 1.5 MG/M2
  4. CARBOPLATIN [Concomitant]
     Indication: RHABDOMYOSARCOMA
     Dosage: 500 MG/M2
  5. IFOSFAMIDE [Suspect]
     Indication: RHABDOMYOSARCOMA
     Dosage: 3000 MG/M2
  6. DACTINOMYCIN [Suspect]
     Indication: RHABDOMYOSARCOMA
     Dosage: 1.5 MG/M2

REACTIONS (9)
  - DIARRHOEA [None]
  - FEBRILE NEUTROPENIA [None]
  - GASTROINTESTINAL DISORDER [None]
  - GROWTH RETARDATION [None]
  - LYMPH NODE ABSCESS [None]
  - NEUTROPENIC SEPSIS [None]
  - RASH MACULO-PAPULAR [None]
  - SEPTIC SHOCK [None]
  - VASCULITIS [None]
